FAERS Safety Report 15206282 (Version 3)
Quarter: 2018Q3

REPORT INFORMATION
  Report Type: Spontaneous
  Country: GB (occurrence: GB)
  Receive Date: 20180727
  Receipt Date: 20180801
  Transmission Date: 20181010
  Serious: Yes (Disabling)
  Sender: FDA-Public Use
  Company Number: GB-TEVA-2018-GB-906302

PATIENT
  Age: 51 Year
  Sex: Female
  Weight: 59 kg

DRUGS (3)
  1. IBUPROFEN. [Concomitant]
     Active Substance: IBUPROFEN
     Indication: RHINITIS ALLERGIC
     Route: 065
  2. AVAMYS [Concomitant]
     Active Substance: FLUTICASONE FUROATE
     Route: 065
  3. CETIRIZINE DIHYDROCHLORIDE [Suspect]
     Active Substance: CETIRIZINE HYDROCHLORIDE
     Indication: RHINITIS ALLERGIC
     Dosage: 1 DOSAGE FORMS DAILY;
     Route: 048
     Dates: start: 20170101, end: 20180201

REACTIONS (5)
  - Urinary incontinence [Recovered/Resolved]
  - Hunger [Recovered/Resolved]
  - Abdominal pain [Recovered/Resolved]
  - Hunger [Unknown]
  - Somnolence [Recovered/Resolved]

NARRATIVE: CASE EVENT DATE: 20170101
